FAERS Safety Report 8414205-6 (Version None)
Quarter: 2012Q2

REPORT INFORMATION
  Report Type: 
  Country: None (occurrence: None)
  Receive Date: 20120605
  Receipt Date: 20120524
  Transmission Date: 20120825
  Serious: No
  Sender: FDA-Public Use
  Company Number: US-ROXANE LABORATORIES, INC.-2012-RO-01310RO

PATIENT
  Sex: Female

DRUGS (1)
  1. FLUTICASONE FUROATE [Suspect]

REACTIONS (1)
  - SALIVA ANALYSIS ABNORMAL [None]
